FAERS Safety Report 19573810 (Version 2)
Quarter: 2021Q3

REPORT INFORMATION
  Report Type: Spontaneous
  Country: PG (occurrence: PG)
  Receive Date: 20210718
  Receipt Date: 20210721
  Transmission Date: 20211014
  Serious: Yes (Death, Other)
  Sender: FDA-Public Use
  Company Number: PG-JNJFOC-20210728769

PATIENT
  Age: 35 Year
  Sex: Female
  Weight: 105 kg

DRUGS (7)
  1. BEDAQUILINE [Suspect]
     Active Substance: BEDAQUILINE
     Indication: TUBERCULOSIS
     Dosage: 7DAYS/WEEK
     Route: 048
     Dates: start: 20200909, end: 20200923
  2. LINEZOLID. [Suspect]
     Active Substance: LINEZOLID
     Indication: TUBERCULOSIS
     Route: 048
     Dates: start: 20200909, end: 20210510
  3. LEVOFLOXACIN. [Suspect]
     Active Substance: LEVOFLOXACIN
     Indication: TUBERCULOSIS
     Dosage: 7DAYS/WEEK
     Route: 048
     Dates: start: 20200909
  4. BEDAQUILINE [Suspect]
     Active Substance: BEDAQUILINE
     Dosage: 3DAYS/WEEK
     Route: 048
     Dates: start: 20200923, end: 20210224
  5. CLOFAZIMINE [Suspect]
     Active Substance: CLOFAZIMINE
     Indication: TUBERCULOSIS
     Route: 048
     Dates: start: 20200909
  6. CYCLOSERINE. [Suspect]
     Active Substance: CYCLOSERINE
     Indication: TUBERCULOSIS
     Route: 048
     Dates: start: 20210510
  7. MEDROXYPROGESTERONE ACETATE. [Concomitant]
     Active Substance: MEDROXYPROGESTERONE ACETATE
     Indication: CONTRACEPTION
     Dosage: 1SHOT
     Route: 058
     Dates: start: 20210412

REACTIONS (11)
  - Pulmonary embolism [Unknown]
  - Back pain [Recovered/Resolved]
  - Optic nerve disorder [Recovering/Resolving]
  - Weight increased [Unknown]
  - Headache [Recovered/Resolved]
  - Death [Fatal]
  - Neuropathy peripheral [Unknown]
  - Electrocardiogram QT prolonged [Recovered/Resolved]
  - Arthralgia [Recovered/Resolved]
  - Alanine aminotransferase increased [Recovered/Resolved]
  - Myocardial infarction [Unknown]

NARRATIVE: CASE EVENT DATE: 20210104
